FAERS Safety Report 7393814-X (Version None)
Quarter: 2011Q1

REPORT INFORMATION
  Report Type: 
  Country: None (occurrence: None)
  Receive Date: 20110330
  Receipt Date: 20110330
  Transmission Date: 20110831
  Serious: Yes (Hospitalization, Other)
  Sender: FDA-Public Use
  Company Number: None

PATIENT
  Age: 5 Year
  Sex: Female
  Weight: 19.2 kg

DRUGS (5)
  1. INDOMETHACIN [Concomitant]
  2. NAPROXEN [Concomitant]
  3. RILONACEPT 220 MG [Suspect]
     Indication: JUVENILE ARTHRITIS
     Dosage: 38.72 ONCE A WEEK SQ
     Route: 058
     Dates: start: 20090826, end: 20100505
  4. ORAPRED [Concomitant]
  5. ZANTAC [Concomitant]

REACTIONS (4)
  - CATHETERISATION CARDIAC [None]
  - PULMONARY HYPERTENSION [None]
  - PULMONARY ARTERIAL PRESSURE INCREASED [None]
  - BIOPSY LUNG [None]
